FAERS Safety Report 25131082 (Version 1)
Quarter: 2025Q1

REPORT INFORMATION
  Report Type: Spontaneous
  Country: CN (occurrence: CN)
  Receive Date: 20250327
  Receipt Date: 20250327
  Transmission Date: 20250408
  Serious: Yes (Other)
  Sender: PURDUE
  Company Number: CN-NAPPMUNDI-GBR-2025-0124278

PATIENT
  Age: 58 Year
  Sex: Male
  Weight: 60 kg

DRUGS (4)
  1. OXYCODONE HYDROCHLORIDE [Suspect]
     Active Substance: OXYCODONE HYDROCHLORIDE
     Indication: Lung neoplasm malignant
     Dosage: 10 MILLIGRAM, Q12H
     Route: 048
  2. OXYCODONE HYDROCHLORIDE [Suspect]
     Active Substance: OXYCODONE HYDROCHLORIDE
     Dosage: 20 MILLIGRAM, Q12H
     Route: 048
     Dates: start: 20250304
  3. PREGABALIN [Suspect]
     Active Substance: PREGABALIN
     Indication: Lung neoplasm malignant
     Route: 048
     Dates: start: 20250304, end: 20250310
  4. CELEBREX [Concomitant]
     Active Substance: CELECOXIB
     Indication: Lung neoplasm malignant
     Dosage: 0.2 GRAM QD FOR 7 DAYS
     Route: 048
     Dates: start: 20250204, end: 20250210

REACTIONS (3)
  - Muscle rigidity [Unknown]
  - Paralysis [Unknown]
  - Labelled drug-drug interaction issue [Unknown]

NARRATIVE: CASE EVENT DATE: 20250304
